FAERS Safety Report 8554579 (Version 2)
Quarter: 2013Q2

REPORT INFORMATION
  Report Type: Spontaneous
  Country: US (occurrence: None)
  Receive Date: 20120327
  Receipt Date: 20120709
  Transmission Date: 20140414
  Serious: Yes (Hospitalization)
  Sender: FDA-Public Use
  Company Number: PHHY2011US16770

PATIENT
  Age: 83 Year
  Sex: Male

DRUGS (2)
  1. GLEEVEC [Suspect]
     Indication: MYELOID LEUKAEMIA
     Route: 048
  2. MIRTAZAPINE (MIRTAZAPINE) [Concomitant]

REACTIONS (4)
  - MYOCARDIAL INFARCTION [None]
  - PRURITUS [None]
  - URTICARIA [None]
  - Muscle spasms [None]
